FAERS Safety Report 8000129-5 (Version None)
Quarter: 2011Q4

REPORT INFORMATION
  Report Type: 
  Country: None (occurrence: None)
  Receive Date: 20111220
  Receipt Date: 20111220
  Transmission Date: 20120403
  Serious: Yes (Hospitalization)
  Sender: FDA-Public Use
  Company Number: None

PATIENT
  Sex: Female
  Weight: 48.9885 kg

DRUGS (2)
  1. ATENOLOL [Suspect]
     Indication: HYPERTENSION
     Dosage: 100 MG 1 A DAY
     Dates: start: 20111104
  2. ATENOLOL [Suspect]
     Indication: HYPERTENSION
     Dosage: 100 MG 1 A DAY
     Dates: start: 20111105

REACTIONS (1)
  - BLOOD PRESSURE INCREASED [None]
